FAERS Safety Report 10786170 (Version 1)
Quarter: 2015Q1

REPORT INFORMATION
  Report Type: Spontaneous
  Country: US (occurrence: US)
  Receive Date: 20150211
  Receipt Date: 20150211
  Transmission Date: 20150721
  Serious: Yes (Death, Hospitalization)
  Sender: FDA-Public Use
  Company Number: US-JNJFOC-20150207845

PATIENT
  Sex: Male
  Weight: 65.5 kg

DRUGS (14)
  1. FINASTERIDE. [Concomitant]
     Active Substance: FINASTERIDE
  2. TERAZOSIN [Concomitant]
     Active Substance: TERAZOSIN\TERAZOSIN HYDROCHLORIDE
  3. NORTRIPTYLINE [Concomitant]
     Active Substance: NORTRIPTYLINE
  4. VITAMIN E\VITAMINS [Concomitant]
     Active Substance: .ALPHA.-TOCOPHEROL\VITAMINS
  5. KLOR-CON [Concomitant]
     Active Substance: POTASSIUM CHLORIDE
  6. IMBRUVICA [Suspect]
     Active Substance: IBRUTINIB
     Indication: LYMPHOMA
     Route: 048
     Dates: start: 20140521, end: 20140902
  7. LASIX [Concomitant]
     Active Substance: FUROSEMIDE
  8. LOSARTAN POTASSIUM. [Concomitant]
     Active Substance: LOSARTAN POTASSIUM
  9. POLY-SACCHARIDE IRON COMPLEX [Concomitant]
  10. VITAMIN B12 [Concomitant]
     Active Substance: CYANOCOBALAMIN
  11. VITAMINE C [Concomitant]
  12. FOLIC ACID. [Concomitant]
     Active Substance: FOLIC ACID
  13. METOPROLOL [Concomitant]
     Active Substance: METOPROLOL
  14. LACTOSE [Concomitant]
     Active Substance: LACTOSE

REACTIONS (2)
  - Pneumonia [Unknown]
  - Pleural effusion [Fatal]

NARRATIVE: CASE EVENT DATE: 201408
